FAERS Safety Report 24072731 (Version 1)
Quarter: 2024Q3

REPORT INFORMATION
  Report Type: Spontaneous
  Country: US (occurrence: None)
  Receive Date: 20240710
  Receipt Date: 20240710
  Transmission Date: 20241016
  Serious: Yes (Life-Threatening, Disabling)
  Sender: Public
  Company Number: None

PATIENT
  Age: 27 Year
  Sex: Male
  Weight: 112.5 kg

DRUGS (4)
  1. CYMBALTA [Suspect]
     Active Substance: DULOXETINE HYDROCHLORIDE
     Indication: Depression
     Dates: start: 20110620, end: 20110810
  2. Vitamins B Complex [Concomitant]
  3. VITAMIN D [Concomitant]
     Active Substance: VITAMIN D NOS
  4. CALCIUM [Concomitant]

REACTIONS (3)
  - Loss of libido [None]
  - Sexual dysfunction [None]
  - Hypoaesthesia [None]

NARRATIVE: CASE EVENT DATE: 20110620
